FAERS Safety Report 5225944-2 (Version None)
Quarter: 2007Q1

REPORT INFORMATION
  Report Type: 
  Country: None (occurrence: None)
  Receive Date: 20070201
  Receipt Date: 20070123
  Transmission Date: 20070707
  Serious: Yes (Hospitalization, Other)
  Sender: FDA-Public Use
  Company Number: PHNU2007DE00678

PATIENT
  Sex: Male

DRUGS (1)
  1. DICLOFENAC SODIUM [Suspect]
     Dosage: 1 DF, ONCE/SINGLE
     Route: 048

REACTIONS (3)
  - BLOOD CREATININE INCREASED [None]
  - PAIN [None]
  - RENAL FAILURE [None]
